FAERS Safety Report 22889909 (Version 4)
Quarter: 2024Q3

REPORT INFORMATION
  Report Type: Spontaneous
  Country: US (occurrence: US)
  Receive Date: 20230831
  Receipt Date: 20240827
  Transmission Date: 20241017
  Serious: Yes (Other)
  Sender: PFIZER
  Company Number: US-PFIZER INC-202300289105

PATIENT
  Age: 59 Year
  Sex: Female

DRUGS (59)
  1. IBRANCE [Suspect]
     Active Substance: PALBOCICLIB
     Indication: Breast cancer stage IV
     Dosage: CYCLE#1, DAILY X 21 DAYS OUT OF 28 DAYS
     Route: 048
     Dates: start: 20180706, end: 20180726
  2. IBRANCE [Suspect]
     Active Substance: PALBOCICLIB
     Dosage: CYCLE#2
     Dates: start: 20180810
  3. IBRANCE [Suspect]
     Active Substance: PALBOCICLIB
     Dosage: CYCLE#3, DAILY X 21 DAYS
     Dates: start: 20180907
  4. IBRANCE [Suspect]
     Active Substance: PALBOCICLIB
     Dosage: CYCLE#4
     Dates: start: 20181005
  5. IBRANCE [Suspect]
     Active Substance: PALBOCICLIB
     Dosage: CYCLE#5
     Dates: start: 20181102
  6. IBRANCE [Suspect]
     Active Substance: PALBOCICLIB
     Dosage: CYCLE#6
     Dates: start: 20181130
  7. IBRANCE [Suspect]
     Active Substance: PALBOCICLIB
     Dosage: CYCLE#7
     Dates: start: 20181228
  8. IBRANCE [Suspect]
     Active Substance: PALBOCICLIB
     Dosage: CYCLE#8
     Dates: start: 20190125
  9. IBRANCE [Suspect]
     Active Substance: PALBOCICLIB
     Dosage: CYCLE#9
     Dates: start: 20190222
  10. IBRANCE [Suspect]
     Active Substance: PALBOCICLIB
     Dosage: CYCLE#10
     Dates: start: 20190322
  11. IBRANCE [Suspect]
     Active Substance: PALBOCICLIB
     Dosage: CYCLE#11
     Dates: start: 20190419
  12. IBRANCE [Suspect]
     Active Substance: PALBOCICLIB
     Dosage: CYCLE#13
     Dates: start: 20190617
  13. IBRANCE [Suspect]
     Active Substance: PALBOCICLIB
     Dosage: CYCLE#14
     Dates: start: 20190715
  14. IBRANCE [Suspect]
     Active Substance: PALBOCICLIB
     Dosage: CYCLE#15
     Dates: start: 20190814
  15. IBRANCE [Suspect]
     Active Substance: PALBOCICLIB
     Dosage: UNK UNK, CYCLIC
     Dates: start: 20191011
  16. IBRANCE [Suspect]
     Active Substance: PALBOCICLIB
     Dosage: UNK UNK, CYCLIC
     Dates: start: 20191112, end: 20191210
  17. IBRANCE [Suspect]
     Active Substance: PALBOCICLIB
     Dosage: UNK
     Dates: start: 20191212
  18. IBRANCE [Suspect]
     Active Substance: PALBOCICLIB
     Dosage: UNK UNK, CYCLIC
     Dates: start: 20200113
  19. IBRANCE [Suspect]
     Active Substance: PALBOCICLIB
     Dosage: UNK UNK, CYCLIC
     Dates: start: 20200214
  20. IBRANCE [Suspect]
     Active Substance: PALBOCICLIB
     Dosage: UNK UNK, CYCLIC
     Dates: start: 20200316
  21. IBRANCE [Suspect]
     Active Substance: PALBOCICLIB
     Dosage: UNK UNK, CYCLIC
     Dates: start: 20200420
  22. IBRANCE [Suspect]
     Active Substance: PALBOCICLIB
     Dosage: UNK UNK, CYCLIC
     Dates: start: 20200518
  23. IBRANCE [Suspect]
     Active Substance: PALBOCICLIB
     Dosage: UNK UNK, CYCLIC
     Dates: start: 20200615
  24. IBRANCE [Suspect]
     Active Substance: PALBOCICLIB
     Dosage: UNK UNK, CYCLIC
     Dates: start: 20200717
  25. IBRANCE [Suspect]
     Active Substance: PALBOCICLIB
     Dosage: UNK UNK, CYCLIC
     Dates: start: 20200817
  26. IBRANCE [Suspect]
     Active Substance: PALBOCICLIB
     Dosage: UNK UNK, CYCLIC
     Dates: start: 20200917
  27. IBRANCE [Suspect]
     Active Substance: PALBOCICLIB
     Dosage: UNK UNK, CYCLIC
     Dates: start: 20201016
  28. IBRANCE [Suspect]
     Active Substance: PALBOCICLIB
     Dosage: UNK UNK, CYCLIC
     Dates: start: 20210212, end: 20210409
  29. IBRANCE [Suspect]
     Active Substance: PALBOCICLIB
     Dosage: UNK UNK, CYCLIC
     Dates: start: 20210412
  30. IBRANCE [Suspect]
     Active Substance: PALBOCICLIB
     Dosage: UNK UNK, CYCLIC
     Dates: start: 20210510
  31. IBRANCE [Suspect]
     Active Substance: PALBOCICLIB
     Dosage: UNK (F/U. WE DECIDED TO SKIP IBRANCE FOR 1 CYCLE TO ALLOW BETTER WOUND HEALING)
     Dates: start: 20210607
  32. IBRANCE [Suspect]
     Active Substance: PALBOCICLIB
     Dosage: UNK UNK, CYCLIC
     Dates: start: 20210712
  33. IBRANCE [Suspect]
     Active Substance: PALBOCICLIB
     Dosage: UNK
     Dates: start: 20210816
  34. IBRANCE [Suspect]
     Active Substance: PALBOCICLIB
     Dosage: UNK UNK, CYCLIC
     Dates: start: 20210915
  35. IBRANCE [Suspect]
     Active Substance: PALBOCICLIB
     Dosage: UNK UNK, CYCLIC
     Dates: start: 20211015
  36. IBRANCE [Suspect]
     Active Substance: PALBOCICLIB
     Dosage: UNK UNK, CYCLIC
     Dates: start: 20211115
  37. IBRANCE [Suspect]
     Active Substance: PALBOCICLIB
     Dosage: UNK UNK, CYCLIC
     Dates: start: 20220110
  38. IBRANCE [Suspect]
     Active Substance: PALBOCICLIB
     Dosage: UNK UNK, CYCLIC
     Dates: start: 20220404
  39. IBRANCE [Suspect]
     Active Substance: PALBOCICLIB
     Dosage: UNK UNK, CYCLIC
     Dates: start: 20220714
  40. IBRANCE [Suspect]
     Active Substance: PALBOCICLIB
     Dosage: UNK UNK, CYCLIC
     Dates: start: 20220919, end: 20221019
  41. IBRANCE [Suspect]
     Active Substance: PALBOCICLIB
     Dosage: UNK UNK, CYCLIC
     Dates: start: 20230103
  42. IBRANCE [Suspect]
     Active Substance: PALBOCICLIB
     Dosage: UNK UNK, CYCLIC
     Dates: start: 20230206
  43. IBRANCE [Suspect]
     Active Substance: PALBOCICLIB
     Dosage: UNK UNK, CYCLIC
     Dates: start: 20230523
  44. IBRANCE [Suspect]
     Active Substance: PALBOCICLIB
     Dosage: UNK UNK, CYCLIC
     Dates: start: 20230630
  45. IBRANCE [Suspect]
     Active Substance: PALBOCICLIB
     Dosage: UNK UNK, CYCLIC
     Dates: start: 20230807
  46. IBRANCE [Suspect]
     Active Substance: PALBOCICLIB
     Dosage: UNK UNK, CYCLIC
     Dates: start: 20231221
  47. IBRANCE [Suspect]
     Active Substance: PALBOCICLIB
     Dosage: UNK
     Dates: start: 20240118
  48. IBRANCE [Suspect]
     Active Substance: PALBOCICLIB
     Dosage: UNK UNK, CYCLIC
     Dates: start: 20240411
  49. IBRANCE [Suspect]
     Active Substance: PALBOCICLIB
     Dosage: UNK UNK, CYCLIC
     Dates: start: 20240516
  50. IBRANCE [Suspect]
     Active Substance: PALBOCICLIB
     Dosage: DAILY FOR 21 DAYS, AND THEN 7 DAYS OFF. REPEAT EVERY 28 DAYS.
     Route: 048
  51. LETROZOLE [Concomitant]
     Active Substance: LETROZOLE
     Dosage: UNK
     Dates: start: 20180706
  52. ZOMETA [Concomitant]
     Active Substance: ZOLEDRONIC ACID
     Dosage: UNK
  53. ZOMETA [Concomitant]
     Active Substance: ZOLEDRONIC ACID
     Dosage: CYCLE#4
     Dates: start: 20181005
  54. ZOMETA [Concomitant]
     Active Substance: ZOLEDRONIC ACID
     Dosage: CYCLE#5
     Dates: start: 20181102
  55. ZOMETA [Concomitant]
     Active Substance: ZOLEDRONIC ACID
     Dosage: CYCLE#6
     Dates: start: 20181130
  56. ZOMETA [Concomitant]
     Active Substance: ZOLEDRONIC ACID
     Dosage: CYCLE#7
     Dates: start: 20181228
  57. ZOMETA [Concomitant]
     Active Substance: ZOLEDRONIC ACID
     Dosage: CYCLE#8
     Dates: start: 20190125
  58. ZOMETA [Concomitant]
     Active Substance: ZOLEDRONIC ACID
     Dosage: CYCLE#9
     Dates: start: 20190222
  59. ZOMETA [Concomitant]
     Active Substance: ZOLEDRONIC ACID
     Dosage: UNK
     Dates: start: 20220404

REACTIONS (14)
  - Neutropenia [Unknown]
  - Leukopenia [Unknown]
  - Thrombocytopenia [Unknown]
  - Pancytopenia [Not Recovered/Not Resolved]
  - Spinal disorder [Unknown]
  - Impaired healing [Not Recovered/Not Resolved]
  - Nausea [Recovered/Resolved]
  - Hot flush [Recovered/Resolved]
  - Headache [Recovered/Resolved]
  - Migraine [Not Recovered/Not Resolved]
  - Headache [Not Recovered/Not Resolved]
  - Wound [Unknown]
  - Pyrexia [Recovered/Resolved]
  - Rash [Recovered/Resolved]

NARRATIVE: CASE EVENT DATE: 20180803
